FAERS Safety Report 8413281-4 (Version None)
Quarter: 2012Q2

REPORT INFORMATION
  Report Type: 
  Country: None (occurrence: None)
  Receive Date: 20120605
  Receipt Date: 20120530
  Transmission Date: 20120825
  Serious: Yes (Hospitalization)
  Sender: FDA-Public Use
  Company Number: PHHO2012NO008023

PATIENT
  Sex: Male
  Weight: 93 kg

DRUGS (4)
  1. PREDNISOLONE [Suspect]
     Dosage: 2.75 MG, QD
     Route: 048
     Dates: start: 20110406
  2. NEORAL [Suspect]
     Dosage: UNK
     Dates: start: 20110406, end: 20110523
  3. MYCOPHENOLATE MOFETIL [Suspect]
     Dosage: 1 G, BID
     Route: 048
     Dates: start: 20110404
  4. CERTICAN [Suspect]
     Indication: HEART TRANSPLANT
     Dosage: 1.75 MG, BID
     Dates: start: 20110406

REACTIONS (2)
  - PERICARDIAL EFFUSION [None]
  - PLEURAL EFFUSION [None]
